FAERS Safety Report 13156559 (Version 1)
Quarter: 2017Q1

REPORT INFORMATION
  Report Type: Spontaneous
  Country: JP (occurrence: JP)
  Receive Date: 20170126
  Receipt Date: 20170126
  Transmission Date: 20170428
  Serious: Yes (Other)
  Sender: FDA-Public Use
  Company Number: JP-BAUSCH-BL-2017-001518

PATIENT
  Age: 78 Year
  Sex: Female

DRUGS (1)
  1. PREDNISOLONE. [Suspect]
     Active Substance: PREDNISOLONE
     Indication: PHARYNGEAL ULCERATION
     Dosage: ONE-WEEK COURSE
     Route: 048

REACTIONS (1)
  - Drug ineffective [Unknown]
